FAERS Safety Report 9746916 (Version 5)
Quarter: 2014Q1

REPORT INFORMATION
  Report Type: Report from Study
  Country: US (occurrence: US)
  Receive Date: 20131211
  Receipt Date: 20140327
  Transmission Date: 20141002
  Serious: Yes (Other)
  Sender: FDA-Public Use
  Company Number: US-SA-2013SA125914

PATIENT
  Age: 43 Year
  Sex: Female
  Weight: 59.9 kg

DRUGS (7)
  1. AUBAGIO [Suspect]
     Indication: MULTIPLE SCLEROSIS
     Route: 048
     Dates: start: 20131006, end: 20140130
  2. AUBAGIO [Suspect]
     Indication: MULTIPLE SCLEROSIS
     Route: 048
     Dates: end: 20140321
  3. CORTICOSTEROID NOS [Suspect]
     Indication: MULTIPLE SCLEROSIS
     Route: 042
  4. NAMENDA [Concomitant]
     Route: 065
  5. DEXTROAMPHETAMINE [Concomitant]
     Indication: ANXIETY
     Route: 048
  6. LORAZEPAM [Concomitant]
     Indication: ANXIETY
     Route: 048
  7. SOLUMEDROL [Concomitant]
     Route: 042
     Dates: start: 20131101

REACTIONS (5)
  - Chest pain [Recovered/Resolved]
  - Adverse drug reaction [Recovered/Resolved]
  - Palpitations [Recovered/Resolved]
  - Weight decreased [Unknown]
  - Multiple sclerosis relapse [Recovered/Resolved]
